FAERS Safety Report 22585997 (Version 1)
Quarter: 2023Q2

REPORT INFORMATION
  Report Type: Spontaneous
  Country: DE (occurrence: DE)
  Receive Date: 20230610
  Receipt Date: 20230610
  Transmission Date: 20230722
  Serious: Yes (Hospitalization, Congenital Anomaly, Other)
  Sender: FDA-Public Use
  Company Number: DE-HETERO-HET2023DE01414

PATIENT
  Sex: Male

DRUGS (5)
  1. LEVETIRACETAM [Suspect]
     Active Substance: LEVETIRACETAM
     Indication: Foetal exposure during pregnancy
     Dosage: UNK (MATERNAL DOSE 3000 MG/DAY (1500 B.I.D))
     Route: 064
     Dates: start: 20220203, end: 20221008
  2. LEVETIRACETAM [Suspect]
     Active Substance: LEVETIRACETAM
     Dosage: UNK (MATERNAL DOSE 2 X 750 MG B.I.D))
     Route: 064
  3. LEVOTHYROXINE SODIUM [Concomitant]
     Active Substance: LEVOTHYROXINE SODIUM
     Indication: Foetal exposure during pregnancy
     Dosage: UNK (MATERNAL DOSE-50 MICROGRAM PER DAY)
     Route: 064
     Dates: start: 20220203, end: 20221008
  4. AMOXICILLIN [Concomitant]
     Active Substance: AMOXICILLIN
     Indication: Foetal exposure during pregnancy
     Dosage: UNK (MATERNAL DOSE 2000 MG/DAY (1000MG B.I.D))
     Route: 064
  5. FEMIBION [Concomitant]
     Indication: Foetal exposure during pregnancy
     Dosage: UNK
     Route: 064
     Dates: start: 20220203, end: 20220912

REACTIONS (6)
  - Urethral atresia [Not Recovered/Not Resolved]
  - Vesicoureteric reflux [Not Recovered/Not Resolved]
  - Foetal megacystis [Recovered/Resolved]
  - Pericardial effusion [Unknown]
  - Cardiac hypertrophy [Unknown]
  - Foetal exposure during pregnancy [Unknown]

NARRATIVE: CASE EVENT DATE: 20230526
